FAERS Safety Report 8984319 (Version 2)
Quarter: 2013Q2

REPORT INFORMATION
  Report Type: Spontaneous
  Country: US (occurrence: None)
  Receive Date: 20120508
  Receipt Date: 20121107
  Transmission Date: 20140414
  Serious: Yes (Other)
  Sender: FDA-Public Use
  Company Number: 2012HGS-003271

PATIENT
  Age: 48 Year
  Sex: Female
  Weight: 108.86 kg

DRUGS (8)
  1. BENLYSTA [Suspect]
     Indication: SYSTEMIC LUPUS ERYTHEMATOSUS
     Dosage: 1 IN 28 D, INTRAVENOUS DRIP
     Route: 041
     Dates: start: 20120127
  2. PREDNISONE(PREDNISONE)(PREDNISONE) [Concomitant]
  3. COUMADIN(WARFARIN SODIUM)(WARFARIN SODIUM) [Concomitant]
  4. LOVASTATIN(LOVASTATIN)(LOVASTATIN) [Concomitant]
  5. OMEPRAZOLE(OMEPRAZOLE)(OMEPRAZOLE) [Concomitant]
  6. EFFEXOR(VENLAFAXINE HYDROCHLORIDE)(VENLAFAXINE HYDROCHLORIDE) [Concomitant]
  7. PLAQUENIL(HYDROXYCHLOROQUINE [Concomitant]
  8. SYNTHROID [Concomitant]

REACTIONS (2)
  - Fatigue [None]
  - Nausea [None]
